FAERS Safety Report 8437952-9 (Version None)
Quarter: 2012Q2

REPORT INFORMATION
  Report Type: 
  Country: None (occurrence: None)
  Receive Date: 20120614
  Receipt Date: 20120525
  Transmission Date: 20120825
  Serious: No
  Sender: FDA-Public Use
  Company Number: US-AMGEN-USASP2012033005

PATIENT
  Sex: Female

DRUGS (6)
  1. LEUCOVORIN CALCIUM [Concomitant]
     Dosage: 1 MG, QD
  2. PROLIA [Suspect]
     Indication: OSTEOPOROSIS POSTMENOPAUSAL
     Dosage: 60 MG, Q6MO
     Dates: start: 20120101
  3. DOXYCYCLINE [Concomitant]
  4. REMICADE [Concomitant]
  5. AGGRENOX [Concomitant]
     Dosage: 2 MG, QD
  6. LUVOX [Concomitant]
     Dosage: 1 MG, QD

REACTIONS (2)
  - TOOTH INFECTION [None]
  - BONE LOSS [None]
